FAERS Safety Report 10069955 (Version 1)
Quarter: 2014Q2

REPORT INFORMATION
  Report Type: Report from Study
  Country: GB (occurrence: GB)
  Receive Date: 20140410
  Receipt Date: 20140410
  Transmission Date: 20141212
  Serious: Yes (Hospitalization)
  Sender: FDA-Public Use
  Company Number: GB-JNJFOC-20140402370

PATIENT
  Age: 67 Year
  Sex: Female
  Weight: 84 kg

DRUGS (5)
  1. USTEKINUMAB [Suspect]
     Indication: PSORIASIS
     Route: 058
     Dates: start: 20130311, end: 20140331
  2. NIFEDIPINE [Concomitant]
     Route: 065
     Dates: start: 20100215, end: 20140116
  3. ASPIRIN [Concomitant]
     Route: 065
     Dates: start: 20100215, end: 20140116
  4. SIMVASTATIN [Concomitant]
     Route: 065
     Dates: start: 20100215
  5. LANSOPRAZOLE [Concomitant]
     Route: 065
     Dates: start: 20140130

REACTIONS (2)
  - Autonomic neuropathy [Not Recovered/Not Resolved]
  - Gastroenteritis [Unknown]
